FAERS Safety Report 6740477-X (Version None)
Quarter: 2010Q2

REPORT INFORMATION
  Report Type: 
  Country: None (occurrence: None)
  Receive Date: 20100525
  Receipt Date: 20100518
  Transmission Date: 20101027
  Serious: Yes (Other)
  Sender: FDA-Public Use
  Company Number: PHHO2010US05523

PATIENT
  Sex: Female
  Weight: 78.3 kg

DRUGS (2)
  1. AFINITOR [Suspect]
     Indication: PANCREATIC CARCINOMA
     Dosage: 5MG M/W/F
     Route: 048
     Dates: start: 20100315, end: 20100406
  2. GEMCITABINE COMPARATOR COMP-GEM+ [Suspect]
     Indication: PANCREATIC CARCINOMA
     Dosage: 800MG/M^2/DAY
     Route: 042
     Dates: start: 20100315, end: 20100406

REACTIONS (3)
  - BLOOD ALKALINE PHOSPHATASE INCREASED [None]
  - HEPATIC ENZYME INCREASED [None]
  - LEUKOPENIA [None]
